FAERS Safety Report 11515962 (Version 1)
Quarter: 2015Q3

REPORT INFORMATION
  Report Type: Spontaneous
  Country: US (occurrence: US)
  Receive Date: 20150916
  Receipt Date: 20150916
  Transmission Date: 20151125
  Serious: No
  Sender: FDA-Public Use
  Company Number: US-GLENMARK PHARMACEUTICALS INC, USA.-2014GMK011360

PATIENT

DRUGS (2)
  1. IRON [Concomitant]
     Active Substance: IRON
     Dosage: UNK
  2. HEATHER [Suspect]
     Active Substance: NORETHINDRONE
     Dosage: UNK
     Dates: start: 201409

REACTIONS (6)
  - Emotional disorder [Unknown]
  - Mood swings [Unknown]
  - Anger [Unknown]
  - Drug dose omission [Unknown]
  - Inappropriate schedule of drug administration [Unknown]
  - Vaginal haemorrhage [Unknown]
